FAERS Safety Report 7961224-X (Version None)
Quarter: 2011Q4

REPORT INFORMATION
  Report Type: 
  Country: None (occurrence: None)
  Receive Date: 20111207
  Receipt Date: 20111127
  Transmission Date: 20120403
  Serious: Yes (Hospitalization)
  Sender: FDA-Public Use
  Company Number: ES-ELI_LILLY_AND_COMPANY-ES201103006716

PATIENT
  Sex: Female

DRUGS (9)
  1. RAMIPRIL [Concomitant]
     Indication: HYPERTENSION
     Dosage: 1C/DAY
     Route: 048
  2. TRAMADOL HCL [Concomitant]
     Indication: PAIN
     Dosage: 6C/DAY,
     Route: 048
  3. BONIVA [Concomitant]
     Indication: BONE DISORDER
     Dosage: 1C/DAY
     Route: 048
  4. CORTICOSTEROIDS [Concomitant]
     Indication: IMMUNOSUPPRESSION
  5. FORTEO [Suspect]
     Dosage: UNK
     Dates: start: 20111127
  6. EMECORT [Concomitant]
     Indication: HYPERTENSION
     Dosage: 1C/DAY
     Route: 048
  7. FORTEO [Suspect]
     Indication: OSTEOPOROSIS
     Dosage: 20 UG, QD
     Route: 058
     Dates: start: 20101115, end: 20110128
  8. CALCIUM CARBONATE [Concomitant]
     Indication: MINERAL SUPPLEMENTATION
     Dosage: UNK, BID
     Route: 048
  9. PREDNISONE TAB [Concomitant]
     Indication: IMMUNOSUPPRESSION
     Dosage: 5 MG, UNK

REACTIONS (2)
  - TUBERCULOSIS [None]
  - IMMUNE SYSTEM DISORDER [None]
